FAERS Safety Report 15061237 (Version 1)
Quarter: 2018Q2

REPORT INFORMATION
  Report Type: Spontaneous
  Country: US (occurrence: US)
  Receive Date: 20180625
  Receipt Date: 20180625
  Transmission Date: 20180711
  Serious: No
  Sender: FDA-Public Use
  Company Number: US-ROCHE-2028500

PATIENT
  Age: 57 Year
  Sex: Male
  Weight: 84.44 kg

DRUGS (1)
  1. XELODA [Suspect]
     Active Substance: CAPECITABINE
     Indication: PANCREATIC CARCINOMA
     Dosage: 3, 500MG + 2, 150MG; 5 PILLS TWICE DAILY ;ONGOING: NO
     Route: 048
     Dates: start: 20171108, end: 20171115

REACTIONS (3)
  - Intentional product use issue [Unknown]
  - Off label use [Unknown]
  - White blood cell count decreased [Not Recovered/Not Resolved]

NARRATIVE: CASE EVENT DATE: 20171115
